FAERS Safety Report 8474389-0 (Version None)
Quarter: 2012Q2

REPORT INFORMATION
  Report Type: 
  Country: None (occurrence: None)
  Receive Date: 20120628
  Receipt Date: 20120404
  Transmission Date: 20120825
  Serious: Yes (Life-Threatening, Other)
  Sender: FDA-Public Use
  Company Number: US-MYLANLABS-2012S1005408

PATIENT
  Age: 48 Year
  Sex: Female
  Weight: 56.7 kg

DRUGS (3)
  1. CLOZAPINE [Suspect]
     Route: 048
     Dates: end: 20120229
  2. CLOZAPINE [Suspect]
     Indication: SCHIZOPHRENIA
     Route: 048
     Dates: end: 20120229
  3. CHEMOTHERAPEUTICS [Suspect]
     Indication: BREAST CANCER
     Dates: start: 20120201

REACTIONS (2)
  - LEUKOPENIA [None]
  - AGRANULOCYTOSIS [None]
